FAERS Safety Report 13681126 (Version 1)
Quarter: 2017Q2

REPORT INFORMATION
  Report Type: Other
  Country: CA (occurrence: CA)
  Receive Date: 20170623
  Receipt Date: 20170623
  Transmission Date: 20170830
  Serious: Yes (Hospitalization, Other)
  Sender: FDA-Public Use
  Company Number: CA-APOTEX-2017AP013128

PATIENT
  Age: 52 Year
  Sex: Female

DRUGS (35)
  1. PREDNISONE. [Suspect]
     Active Substance: PREDNISONE
     Indication: ASTHMA
     Dosage: 13.75 MG, UNK
     Route: 048
  2. PREDNISONE. [Suspect]
     Active Substance: PREDNISONE
     Dosage: 5 MG, QD
     Route: 048
  3. PREDNISONE. [Suspect]
     Active Substance: PREDNISONE
     Dosage: 3.5 MG, UNK
     Route: 048
  4. XOLAIR [Suspect]
     Active Substance: OMALIZUMAB
     Indication: ASTHMA
     Dosage: 375 MG, ONCE EVERY 2 WEEKS
     Route: 058
  5. ERGOCALCIFEROL. [Concomitant]
     Active Substance: ERGOCALCIFEROL
     Indication: CALCIUM DEFICIENCY
     Route: 065
  6. RISEDRONATE [Concomitant]
     Active Substance: RISEDRONATE SODIUM
     Indication: RHONCHI
  7. TARKA [Concomitant]
     Active Substance: TRANDOLAPRIL\VERAPAMIL HYDROCHLORIDE
     Indication: HEART RATE INCREASED
     Route: 065
  8. PREDNISONE. [Suspect]
     Active Substance: PREDNISONE
     Dosage: 50 MG, QD
     Route: 048
  9. PREDNISONE. [Suspect]
     Active Substance: PREDNISONE
     Dosage: 12.5 MG, QD
     Route: 048
  10. PREDNISONE. [Suspect]
     Active Substance: PREDNISONE
     Dosage: 8.75 MG, QD
     Route: 048
  11. PREDNISONE. [Suspect]
     Active Substance: PREDNISONE
     Dosage: 8 UNK, UNK
     Route: 065
  12. PREDNISONE. [Suspect]
     Active Substance: PREDNISONE
     Dosage: 15 MG, UNK
     Route: 048
  13. PREDNISONE. [Suspect]
     Active Substance: PREDNISONE
     Dosage: 7.5 MG, QD
     Route: 048
  14. MAGNESIUM [Concomitant]
     Active Substance: MAGNESIUM
     Indication: PRODUCT USED FOR UNKNOWN INDICATION
     Route: 065
  15. SINGULAIR [Concomitant]
     Active Substance: MONTELUKAST SODIUM
     Indication: PRODUCT USED FOR UNKNOWN INDICATION
     Route: 065
  16. PREDNISONE. [Suspect]
     Active Substance: PREDNISONE
     Dosage: 20 MG, QD
     Route: 048
  17. PREDNISONE. [Suspect]
     Active Substance: PREDNISONE
     Dosage: 11.25 MG, UNK
     Route: 048
  18. IMURAN [Suspect]
     Active Substance: AZATHIOPRINE
     Dosage: 150 MG, QD
     Route: 048
  19. AZATHIOPRINE. [Concomitant]
     Active Substance: AZATHIOPRINE
     Indication: PRODUCT USED FOR UNKNOWN INDICATION
     Dosage: 250 MG, UNK
     Route: 065
  20. AZATHIOPRINE. [Concomitant]
     Active Substance: AZATHIOPRINE
     Dosage: 200 MG, UNK
     Route: 065
  21. RISEDRONATE [Concomitant]
     Active Substance: RISEDRONATE SODIUM
     Indication: WHEEZING
     Route: 065
  22. SPIRIVA [Concomitant]
     Active Substance: TIOTROPIUM BROMIDE MONOHYDRATE
     Indication: PRODUCT USED FOR UNKNOWN INDICATION
     Route: 065
  23. ADVAIR HFA [Concomitant]
     Active Substance: FLUTICASONE PROPIONATE\SALMETEROL XINAFOATE
     Indication: PRODUCT USED FOR UNKNOWN INDICATION
     Route: 065
  24. PREDNISONE. [Suspect]
     Active Substance: PREDNISONE
     Dosage: 15 MG, QD
     Route: 048
  25. PREDNISONE. [Suspect]
     Active Substance: PREDNISONE
     Dosage: 7 MG, QD
     Route: 048
  26. APO-MONTELUKAST [Suspect]
     Active Substance: MONTELUKAST SODIUM
     Indication: ASTHMA
     Dosage: 10 MG, QD
     Route: 048
  27. PREDNISONE. [Suspect]
     Active Substance: PREDNISONE
     Dosage: 3.75 MG, QD
     Route: 048
  28. PREDNISONE. [Suspect]
     Active Substance: PREDNISONE
     Dosage: 6 UNK, UNK
     Route: 048
  29. IMURAN [Suspect]
     Active Substance: AZATHIOPRINE
     Dosage: 50 MG, QD
     Route: 048
  30. AZATHIOPRINE. [Concomitant]
     Active Substance: AZATHIOPRINE
     Dosage: 150 MG, UNK
     Route: 065
  31. RISPERIDONE. [Concomitant]
     Active Substance: RISPERIDONE
     Indication: PRODUCT USED FOR UNKNOWN INDICATION
     Route: 065
  32. SALBUTAMOL [Concomitant]
     Active Substance: ALBUTEROL
     Indication: ASTHMA
     Dosage: 2 DF, UNK
     Route: 065
  33. PREDNISONE. [Suspect]
     Active Substance: PREDNISONE
     Dosage: 10 MG, QD
     Route: 048
  34. IMURAN [Suspect]
     Active Substance: AZATHIOPRINE
     Indication: INFLAMMATION
     Dosage: 200 MG, QD
     Route: 048
  35. CALCIUM [Concomitant]
     Active Substance: CALCIUM
     Indication: PRODUCT USED FOR UNKNOWN INDICATION
     Route: 065

REACTIONS (62)
  - Hyperhidrosis [Not Recovered/Not Resolved]
  - Hypoventilation [Not Recovered/Not Resolved]
  - Influenza [Not Recovered/Not Resolved]
  - Joint swelling [Not Recovered/Not Resolved]
  - Paranasal sinus discomfort [Not Recovered/Not Resolved]
  - Temporal arteritis [Not Recovered/Not Resolved]
  - Tendon pain [Not Recovered/Not Resolved]
  - Asthenia [Not Recovered/Not Resolved]
  - Ankle fracture [Not Recovered/Not Resolved]
  - Breath sounds abnormal [Not Recovered/Not Resolved]
  - Chest pain [Not Recovered/Not Resolved]
  - Mobility decreased [Not Recovered/Not Resolved]
  - Nausea [Not Recovered/Not Resolved]
  - Wheezing [Not Recovered/Not Resolved]
  - Chest discomfort [Not Recovered/Not Resolved]
  - Chills [Not Recovered/Not Resolved]
  - Musculoskeletal stiffness [Not Recovered/Not Resolved]
  - Oedema peripheral [Not Recovered/Not Resolved]
  - Pain [Not Recovered/Not Resolved]
  - Pharyngitis streptococcal [Not Recovered/Not Resolved]
  - Rhinorrhoea [Not Recovered/Not Resolved]
  - Sputum discoloured [Not Recovered/Not Resolved]
  - Pyrexia [Not Recovered/Not Resolved]
  - Asthma [Not Recovered/Not Resolved]
  - Autoimmune disorder [Not Recovered/Not Resolved]
  - Blood glucose increased [Not Recovered/Not Resolved]
  - Dyspnoea [Not Recovered/Not Resolved]
  - Eye swelling [Not Recovered/Not Resolved]
  - Heart rate increased [Not Recovered/Not Resolved]
  - Impaired healing [Not Recovered/Not Resolved]
  - Neuralgia [Not Recovered/Not Resolved]
  - Retinal disorder [Not Recovered/Not Resolved]
  - Rhonchi [Not Recovered/Not Resolved]
  - Cough [Not Recovered/Not Resolved]
  - Deafness bilateral [Not Recovered/Not Resolved]
  - Dyspnoea at rest [Not Recovered/Not Resolved]
  - Inflammation [Not Recovered/Not Resolved]
  - Lower respiratory tract infection [Not Recovered/Not Resolved]
  - Vomiting [Not Recovered/Not Resolved]
  - Diabetes mellitus [Not Recovered/Not Resolved]
  - Lymphadenopathy [Not Recovered/Not Resolved]
  - Nasopharyngitis [Not Recovered/Not Resolved]
  - Productive cough [Not Recovered/Not Resolved]
  - Respiratory rate increased [Not Recovered/Not Resolved]
  - Respiratory tract congestion [Not Recovered/Not Resolved]
  - Muscle spasms [Not Recovered/Not Resolved]
  - Myalgia [Not Recovered/Not Resolved]
  - Upper respiratory tract infection [Not Recovered/Not Resolved]
  - Arthritis [Not Recovered/Not Resolved]
  - Burning sensation [Not Recovered/Not Resolved]
  - Hepatomegaly [Not Recovered/Not Resolved]
  - Influenza like illness [Not Recovered/Not Resolved]
  - Nephrolithiasis [Not Recovered/Not Resolved]
  - Pneumonia [Not Recovered/Not Resolved]
  - Vision blurred [Not Recovered/Not Resolved]
  - Fatigue [Not Recovered/Not Resolved]
  - Body temperature decreased [Not Recovered/Not Resolved]
  - Nocturnal dyspnoea [Not Recovered/Not Resolved]
  - Malaise [Not Recovered/Not Resolved]
  - Pleurisy [Not Recovered/Not Resolved]
  - Insomnia [Not Recovered/Not Resolved]
  - Diarrhoea [Not Recovered/Not Resolved]
